FAERS Safety Report 5535277-2 (Version None)
Quarter: 2007Q4

REPORT INFORMATION
  Report Type: 
  Country: None (occurrence: None)
  Receive Date: 20071204
  Receipt Date: 20071204
  Transmission Date: 20080405
  Serious: Yes (Hospitalization)
  Sender: FDA-Public Use
  Company Number: None

PATIENT
  Age: 39 Year
  Sex: Female
  Weight: 67.1 kg

DRUGS (2)
  1. CETUXIMAB [Suspect]
     Indication: BREAST CANCER
     Dosage: 400 MG/M2 WEEKLY IV
     Route: 042
     Dates: start: 20071008, end: 20071119
  2. CARBOPLATIN [Suspect]
     Indication: BREAST CANCER
     Dosage: 2 AUC WEEKLY IV
     Route: 042
     Dates: start: 20071008, end: 20071119

REACTIONS (2)
  - DISEASE PROGRESSION [None]
  - DYSPNOEA [None]
